FAERS Safety Report 10067213 (Version 1)
Quarter: 2014Q2

REPORT INFORMATION
  Report Type: Spontaneous
  Country: US (occurrence: None)
  Receive Date: 20140408
  Receipt Date: 20140408
  Transmission Date: 20141212
  Serious: Yes (Other)
  Sender: FDA-Public Use
  Company Number: None

PATIENT
  Age: 52 Year
  Sex: Female
  Weight: 74.84 kg

DRUGS (1)
  1. FLEXERIL [Suspect]
     Indication: BACK PAIN
     Route: 048
     Dates: start: 20140226, end: 20140407

REACTIONS (1)
  - Muscle twitching [None]
